FAERS Safety Report 4634210-5 (Version None)
Quarter: 2005Q2

REPORT INFORMATION
  Report Type: 
  Country: None (occurrence: None)
  Receive Date: 20050325
  Receipt Date: 20050124
  Transmission Date: 20051028
  Serious: No
  Sender: FDA-Public Use
  Company Number: USA050187241

PATIENT
  Age: 86 Year
  Sex: Male
  Weight: 75 kg

DRUGS (10)
  1. FORTEO [Suspect]
     Indication: OSTEOPOROSIS
     Dosage: 20 UG DAY
     Dates: start: 20041215
  2. PROCRIT [Concomitant]
  3. LOTREL [Concomitant]
  4. COREG [Concomitant]
  5. ADIPHEX (PHENTERMINE) [Concomitant]
  6. BUSPAR [Concomitant]
  7. HYDROCHLOROTHIAZIDE [Concomitant]
  8. PROSCAR [Concomitant]
  9. TAMSULOSIN [Concomitant]
  10. MAGNESIUM [Concomitant]

REACTIONS (11)
  - BLOOD PRESSURE INCREASED [None]
  - CONSTIPATION [None]
  - DIZZINESS [None]
  - DRUG INEFFECTIVE [None]
  - HAEMOGLOBIN DECREASED [None]
  - HAEMORRHAGE [None]
  - INJECTION SITE HAEMORRHAGE [None]
  - INJECTION SITE PAIN [None]
  - INJECTION SITE REACTION [None]
  - PURPURA [None]
  - RASH [None]
